FAERS Safety Report 16137222 (Version 1)
Quarter: 2019Q2

REPORT INFORMATION
  Report Type: Spontaneous
  Country: FR (occurrence: FR)
  Receive Date: 20190401
  Receipt Date: 20190401
  Transmission Date: 20190711
  Serious: Yes (Hospitalization)
  Sender: FDA-Public Use
  Company Number: FR-ROCHE-2293069

PATIENT
  Age: 26 Year
  Sex: Male
  Weight: 86 kg

DRUGS (3)
  1. VALIUM [Suspect]
     Active Substance: DIAZEPAM
     Indication: POISONING DELIBERATE
     Dosage: CF COMMENTS
     Route: 048
     Dates: start: 20190127, end: 20190127
  2. RISPERDAL [Suspect]
     Active Substance: RISPERIDONE
     Indication: POISONING DELIBERATE
     Dosage: CF COMMENTS
     Route: 048
     Dates: start: 20190127, end: 20190127
  3. LOXAPAC [Suspect]
     Active Substance: LOXAPINE
     Indication: POISONING DELIBERATE
     Dosage: CF COMMENTS
     Route: 048
     Dates: start: 20190127, end: 20190127

REACTIONS (1)
  - Somnolence [Recovered/Resolved]

NARRATIVE: CASE EVENT DATE: 20190127
